FAERS Safety Report 17287992 (Version 1)
Quarter: 2020Q1

REPORT INFORMATION
  Report Type: Spontaneous
  Country: US (occurrence: US)
  Receive Date: 20200120
  Receipt Date: 20200120
  Transmission Date: 20200409
  Serious: No
  Sender: FDA-Public Use
  Company Number: US-DEXPHARM-20190993

PATIENT
  Age: 62 Year
  Sex: Male
  Weight: 108.84 kg

DRUGS (2)
  1. OMEPRAZOLE DELAYED RELEASE ORALLY DISINTEGRATING STRAWBERRY TABLETS 20 [Suspect]
     Active Substance: OMEPRAZOLE
     Indication: GASTRITIS
     Dosage: 20 MG, SINGLE
     Route: 048
     Dates: start: 201911, end: 201911
  2. ZOCOR [Concomitant]
     Active Substance: SIMVASTATIN
     Indication: BLOOD CHOLESTEROL INCREASED
     Dosage: UNK

REACTIONS (2)
  - Chest discomfort [Not Recovered/Not Resolved]
  - Abdominal pain upper [Not Recovered/Not Resolved]

NARRATIVE: CASE EVENT DATE: 201911
